FAERS Safety Report 8289262-0 (Version None)
Quarter: 2012Q2

REPORT INFORMATION
  Report Type: 
  Country: None (occurrence: None)
  Receive Date: 20120417
  Receipt Date: 20110304
  Transmission Date: 20120825
  Serious: Yes (Other)
  Sender: FDA-Public Use
  Company Number: GB-UCBSA-055235

PATIENT
  Age: 37 Year
  Sex: Female

DRUGS (4)
  1. ACETAMINOPHEN AND CODEINE PHOSPHATE [Suspect]
     Indication: SYMPHYSIOLYSIS
     Route: 048
  2. BUTRANS [Suspect]
     Indication: SYMPHYSIOLYSIS
     Dosage: 10 MCG/HOUR
     Route: 062
     Dates: start: 20101215, end: 20101229
  3. ACETAMINOPHEN [Suspect]
     Indication: SYMPHYSIOLYSIS
     Route: 048
  4. MORPHINE SULFATE [Suspect]
     Indication: SYMPHYSIOLYSIS
     Dates: start: 20100922

REACTIONS (2)
  - MATERNAL EXPOSURE DURING PREGNANCY [None]
  - FOETAL DEATH [None]
